FAERS Safety Report 13713607 (Version 1)
Quarter: 2017Q3

REPORT INFORMATION
  Report Type: Spontaneous
  Country: US (occurrence: US)
  Receive Date: 20170704
  Receipt Date: 20170704
  Transmission Date: 20171127
  Serious: Yes (Hospitalization, Other)
  Sender: FDA-Public Use
  Company Number: US-IBIGEN-2016.01937

PATIENT
  Age: 21 Year
  Sex: Male

DRUGS (3)
  1. HALOPERIDOL. [Suspect]
     Active Substance: HALOPERIDOL
     Dosage: 5 MG
     Route: 042
  2. LORAZEPAM. [Suspect]
     Active Substance: LORAZEPAM
     Indication: ANXIETY
     Dosage: 1 MG
  3. PIPERACILLIN/TAZOBACTAM [Suspect]
     Active Substance: PIPERACILLIN SODIUM\TAZOBACTAM SODIUM
     Indication: OESOPHAGEAL RUPTURE

REACTIONS (14)
  - Somnolence [Recovered/Resolved]
  - Hallucinations, mixed [Recovered/Resolved]
  - Restlessness [Recovered/Resolved]
  - Delirium [Recovered/Resolved]
  - Agitation [Recovered/Resolved]
  - Akathisia [Recovered/Resolved]
  - Rhabdomyolysis [Recovered/Resolved]
  - Feeling hot [Recovered/Resolved]
  - Hallucination, tactile [Recovered/Resolved]
  - Disorientation [Recovered/Resolved]
  - Confusional state [Recovered/Resolved]
  - Flushing [Recovered/Resolved]
  - Speech disorder [Recovered/Resolved]
  - Dyskinesia [Recovered/Resolved]
